FAERS Safety Report 19433585 (Version 8)
Quarter: 2022Q1

REPORT INFORMATION
  Report Type: Spontaneous
  Country: US (occurrence: US)
  Receive Date: 20210617
  Receipt Date: 20220309
  Transmission Date: 20220423
  Serious: Yes (Other)
  Sender: FDA-Public Use
  Company Number: US-GLOBAL BLOOD THERAPEUTICS INC-US-GBT-21-01970

PATIENT
  Sex: Female

DRUGS (6)
  1. OXBRYTA [Suspect]
     Active Substance: VOXELOTOR
     Indication: Sickle cell disease
     Route: 048
     Dates: start: 2019, end: 20210624
  2. OXBRYTA [Suspect]
     Active Substance: VOXELOTOR
     Route: 048
     Dates: end: 20210701
  3. OXBRYTA [Suspect]
     Active Substance: VOXELOTOR
     Dosage: NOT PROVIDED
     Route: 048
     Dates: start: 20211105
  4. HYDREA [Concomitant]
     Active Substance: HYDROXYUREA
     Indication: Product used for unknown indication
     Dosage: NOT PROVIDED
  5. FERRIPROX [Concomitant]
     Active Substance: DEFERIPRONE
     Indication: Blood iron abnormal
     Dosage: NOT PROVIDED
  6. TRANSFUSION [Concomitant]
     Indication: Sickle cell disease
     Dosage: NOT PROVIDED

REACTIONS (5)
  - Dialysis [Not Recovered/Not Resolved]
  - Therapy cessation [Unknown]
  - Therapy non-responder [Unknown]
  - Product dose omission issue [Unknown]
  - Off label use [Unknown]

NARRATIVE: CASE EVENT DATE: 20190101
